FAERS Safety Report 6213808-7 (Version None)
Quarter: 2009Q2

REPORT INFORMATION
  Report Type: 
  Country: None (occurrence: None)
  Receive Date: 20090602
  Receipt Date: 20090520
  Transmission Date: 20091009
  Serious: Yes (Other)
  Sender: FDA-Public Use
  Company Number: 235066K09USA

PATIENT
  Age: 62 Year
  Sex: Female
  Weight: 52 kg

DRUGS (2)
  1. REBIF [Suspect]
     Indication: MULTIPLE SCLEROSIS
     Dosage: 44 MCG, 3 IN 1 WEEKS, SUBCUTANEOUS
     Route: 058
     Dates: start: 20031229
  2. VYTORIN [Concomitant]

REACTIONS (2)
  - ANXIETY [None]
  - BREAST CANCER FEMALE [None]
